FAERS Safety Report 7524440-7 (Version None)
Quarter: 2011Q2

REPORT INFORMATION
  Report Type: 
  Country: None (occurrence: None)
  Receive Date: 20110525
  Receipt Date: 20110511
  Transmission Date: 20111010
  Serious: Yes (Other)
  Sender: FDA-Public Use
  Company Number: PHHY2011JP40213

PATIENT
  Age: 14 Year
  Sex: Male

DRUGS (1)
  1. VISUDYNE [Suspect]

REACTIONS (1)
  - RETINAL DETACHMENT [None]
